FAERS Safety Report 9339020 (Version 1)
Quarter: 2013Q2

REPORT INFORMATION
  Report Type: Spontaneous
  Country: US (occurrence: US)
  Receive Date: 20130610
  Receipt Date: 20130610
  Transmission Date: 20140414
  Serious: No
  Sender: FDA-Public Use
  Company Number: US-GLAXOSMITHKLINE-A1000554A

PATIENT
  Age: 63 Year
  Sex: Female

DRUGS (1)
  1. ALTABAX [Suspect]
     Indication: WOUND
     Route: 061
     Dates: start: 20121105, end: 20121107

REACTIONS (3)
  - Erythema [Recovering/Resolving]
  - Skin irritation [Recovering/Resolving]
  - Pain [Recovering/Resolving]
